FAERS Safety Report 10151996 (Version 2)
Quarter: 2014Q4

REPORT INFORMATION
  Report Type: Spontaneous
  Country: US (occurrence: None)
  Receive Date: 20140501
  Receipt Date: 20141105
  Transmission Date: 20150528
  Serious: Yes (Other)
  Sender: FDA-Public Use
  Company Number: 2014-US-004348

PATIENT
  Age: 66 Year
  Sex: Male
  Weight: 68 kg

DRUGS (2)
  1. XYREM [Suspect]
     Active Substance: SODIUM OXYBATE
     Indication: NARCOLEPSY
     Route: 048
     Dates: start: 201008, end: 2010
  2. NUVIGIL [Suspect]
     Active Substance: ARMODAFINIL
     Indication: PRODUCT USED FOR UNKNOWN INDICATION

REACTIONS (9)
  - Gastritis [None]
  - Humerus fracture [None]
  - Sleep disorder [None]
  - Fall [None]
  - Influenza [None]
  - Enuresis [None]
  - Anxiety [None]
  - Weight decreased [None]
  - Pneumonia aspiration [None]

NARRATIVE: CASE EVENT DATE: 2010
